FAERS Safety Report 4296538-0 (Version None)
Quarter: 2004Q1

REPORT INFORMATION
  Report Type: 
  Country: None (occurrence: None)
  Receive Date: 20040126
  Receipt Date: 20030908
  Transmission Date: 20041129
  Serious: No
  Sender: FDA-Public Use
  Company Number: USA030844719

PATIENT
  Age: 14 Year
  Sex: Male
  Weight: 40 kg

DRUGS (3)
  1. STRATTERA [Suspect]
     Indication: ATTENTION DEFICIT/HYPERACTIVITY DISORDER
     Dosage: 60 MG/IN THE MORNING
     Dates: start: 20030601, end: 20030815
  2. DEXAMETHASONE [Concomitant]
  3. VINCRISTINE [Concomitant]

REACTIONS (4)
  - CONSTIPATION [None]
  - DRUG INTERACTION [None]
  - NEUROPATHY [None]
  - PANIC ATTACK [None]
